FAERS Safety Report 4736287-5 (Version None)
Quarter: 2005Q3

REPORT INFORMATION
  Report Type: 
  Country: None (occurrence: None)
  Receive Date: 20050805
  Receipt Date: 20050805
  Transmission Date: 20060218
  Serious: Yes (Hospitalization)
  Sender: FDA-Public Use
  Company Number: None

PATIENT
  Age: 50 Year
  Sex: Male
  Weight: 112 kg

DRUGS (1)
  1. INNOHEP [Suspect]
     Indication: THROMBOSIS PROPHYLAXIS
     Dosage: 4500 IU SC QD
     Route: 058
     Dates: start: 20050609, end: 20050716

REACTIONS (3)
  - DEEP VEIN THROMBOSIS [None]
  - HEMIPARESIS [None]
  - MENTAL STATUS CHANGES [None]
